FAERS Safety Report 11233624 (Version 1)
Quarter: 2015Q3

REPORT INFORMATION
  Report Type: Report from Study
  Country: US (occurrence: US)
  Receive Date: 20150702
  Receipt Date: 20150702
  Transmission Date: 20151125
  Serious: Yes (Hospitalization)
  Sender: FDA-Public Use
  Company Number: US-009507513-1506USA014279

PATIENT
  Age: 66 Year
  Sex: Female

DRUGS (16)
  1. PSEUDOEPHEDRINE [Concomitant]
     Active Substance: PSEUDOEPHEDRINE
  2. NITROFURANTOIN. [Suspect]
     Active Substance: NITROFURANTOIN
     Indication: URINARY TRACT INFECTION
     Route: 048
  3. GABAPENTIN. [Concomitant]
     Active Substance: GABAPENTIN
  4. OMEPRAZOLE. [Concomitant]
     Active Substance: OMEPRAZOLE
  5. DICLOFENAC [Suspect]
     Active Substance: DICLOFENAC
  6. RAMIPRIL. [Suspect]
     Active Substance: RAMIPRIL
  7. CANDESARTAN [Concomitant]
     Active Substance: CANDESARTAN
  8. ALUMINUM HYDROXIDE (+) MAGNESIUM CARBONATE [Concomitant]
  9. ALBUTEROL. [Concomitant]
     Active Substance: ALBUTEROL
  10. ZOCOR [Suspect]
     Active Substance: SIMVASTATIN
     Indication: HYPERLIPIDAEMIA
     Route: 048
  11. CODEINE [Concomitant]
     Active Substance: CODEINE
  12. BUDESONIDE. [Concomitant]
     Active Substance: BUDESONIDE
  13. FEXOFENADINE HYDROCHLORIDE. [Concomitant]
     Active Substance: FEXOFENADINE HYDROCHLORIDE
  14. ELOCON [Concomitant]
     Active Substance: MOMETASONE FUROATE
  15. EVOLOCUMAB [Suspect]
     Active Substance: EVOLOCUMAB
     Indication: HYPERLIPIDAEMIA
     Dosage: UNK
     Dates: start: 20131009
  16. ACETAMINOPHEN. [Concomitant]
     Active Substance: ACETAMINOPHEN

REACTIONS (2)
  - Hepatic function abnormal [Recovered/Resolved]
  - Dyspepsia [Unknown]

NARRATIVE: CASE EVENT DATE: 20131209
